FAERS Safety Report 4341576-2 (Version None)
Quarter: 2004Q2

REPORT INFORMATION
  Report Type: 
  Country: None (occurrence: None)
  Receive Date: 20040419
  Receipt Date: 20040419
  Transmission Date: 20050107
  Serious: Yes (Hospitalization)
  Sender: FDA-Public Use
  Company Number: None

PATIENT
  Age: 31 Year
  Sex: Female
  Weight: 72.1219 kg

DRUGS (5)
  1. CARBAMAZEPINE [Suspect]
     Indication: BIPOLAR I DISORDER
     Dosage: 200 MG BID ORAL
     Route: 048
     Dates: start: 20040323, end: 20040424
  2. VALPROIC ACID [Suspect]
     Indication: BIPOLAR I DISORDER
     Dosage: 250 MG Q HS ORAL
     Route: 048
     Dates: start: 20040405, end: 20040408
  3. LITHIUM [Concomitant]
  4. SEROQUEL [Concomitant]
  5. LORAZEPAM [Concomitant]

REACTIONS (4)
  - FULL BLOOD COUNT ABNORMAL [None]
  - NEUTROPENIA [None]
  - PYREXIA [None]
  - RASH GENERALISED [None]
